FAERS Safety Report 8042691-2 (Version None)
Quarter: 2012Q1

REPORT INFORMATION
  Report Type: 
  Country: None (occurrence: None)
  Receive Date: 20120112
  Receipt Date: 20120109
  Transmission Date: 20120608
  Serious: Yes (Other)
  Sender: FDA-Public Use
  Company Number: DE-MERCK-1201DEU00020

PATIENT
  Age: 63 Year
  Sex: Female

DRUGS (1)
  1. SINEMET [Suspect]
     Indication: RESTLESS LEGS SYNDROME
     Route: 048
     Dates: start: 20080314

REACTIONS (2)
  - OFF LABEL USE [None]
  - METASTATIC MALIGNANT MELANOMA [None]
